FAERS Safety Report 14111112 (Version 1)
Quarter: 2017Q4

REPORT INFORMATION
  Report Type: Spontaneous
  Country: US (occurrence: US)
  Receive Date: 20171020
  Receipt Date: 20171020
  Transmission Date: 20180321
  Serious: No
  Sender: FDA-Public Use
  Company Number: US-009507513-1710USA004558

PATIENT
  Age: 18 Year
  Sex: Female
  Weight: 49.89 kg

DRUGS (1)
  1. NUVARING [Suspect]
     Active Substance: ETHINYL ESTRADIOL\ETONOGESTREL
     Indication: MENSTRUAL CYCLE MANAGEMENT
     Dosage: UNK, 4 WEEKS CONTINUOUSLY
     Route: 067
     Dates: start: 20170830

REACTIONS (4)
  - Product use in unapproved indication [Unknown]
  - Incorrect drug administration duration [Unknown]
  - Drug prescribing error [Unknown]
  - Vaginal haemorrhage [Not Recovered/Not Resolved]

NARRATIVE: CASE EVENT DATE: 20170830
